FAERS Safety Report 18263096 (Version 1)
Quarter: 2020Q3

REPORT INFORMATION
  Report Type: Spontaneous
  Country: NL (occurrence: NL)
  Receive Date: 20200914
  Receipt Date: 20200914
  Transmission Date: 20201103
  Serious: Yes (Hospitalization)
  Sender: FDA-Public Use
  Company Number: NL-TEVA-2020-NL-1827673

PATIENT
  Age: 64 Year
  Sex: Male

DRUGS (2)
  1. DUTASTERIDE/TAMSULOSINE CAPSULE 0,5/0,4MG / BRAND NAME NOT SPECIFIED [Suspect]
     Active Substance: DUTASTERIDE\TAMSULOSIN
     Dosage: THERAPY END DATE: ASKED BUT UNKNOWN
     Dates: start: 2010
  2. ACENOCOUMAROL TABLET 1MG / BRAND NAME NOT SPECIFIED [Interacting]
     Active Substance: ACENOCOUMAROL
     Dosage: THERAPY END DATE: ASKED BUT UNKNOWN
     Dates: start: 1999

REACTIONS (2)
  - Drug interaction [Unknown]
  - Seizure [Recovered/Resolved]

NARRATIVE: CASE EVENT DATE: 20140329
